FAERS Safety Report 6300833-0 (Version None)
Quarter: 2009Q3

REPORT INFORMATION
  Report Type: 
  Country: None (occurrence: None)
  Receive Date: 20090807
  Receipt Date: 20090727
  Transmission Date: 20100115
  Serious: Yes (Death, Other)
  Sender: FDA-Public Use
  Company Number: JP-PFIZER INC-2009211420

PATIENT
  Age: 69 Year

DRUGS (8)
  1. ZITHROMAX [Suspect]
     Dosage: UNK
     Route: 048
     Dates: start: 20090122, end: 20090101
  2. PIRFENIDONE [Suspect]
     Indication: IDIOPATHIC PULMONARY FIBROSIS
     Dosage: 200 MG, 3X/DAY
     Route: 048
     Dates: start: 20090116, end: 20090129
  3. RISEDRONATE SODIUM HYDRATE [Concomitant]
     Route: 048
  4. BAKTAR [Concomitant]
     Route: 048
  5. PREDONINE [Concomitant]
     Route: 048
  6. TAKEPRON [Concomitant]
  7. SUPLATAST TOSILATE [Concomitant]
  8. SPIRIVA [Concomitant]

REACTIONS (7)
  - ALANINE AMINOTRANSFERASE INCREASED [None]
  - ASPARTATE AMINOTRANSFERASE INCREASED [None]
  - BLOOD ALKALINE PHOSPHATASE INCREASED [None]
  - BLOOD LACTATE DEHYDROGENASE INCREASED [None]
  - BRONCHITIS [None]
  - IDIOPATHIC PULMONARY FIBROSIS [None]
  - LIVER DISORDER [None]
